FAERS Safety Report 8712528 (Version 3)
Quarter: 2012Q4

REPORT INFORMATION
  Report Type: 
  Country: GB (occurrence: GB)
  Receive Date: 20120808
  Receipt Date: 20121105
  Transmission Date: 20130627
  Serious: Yes (Death, Hospitalization, Disabling, Other)
  Sender: FDA-Public Use
  Company Number: GB-CELGENEUS-167-21880-12072905

PATIENT
  Age: 65 None
  Sex: Male
  Weight: 105 kg

DRUGS (33)
  1. REVLIMID [Suspect]
     Indication: MYELOMA
     Route: 048
     Dates: start: 20111222
  2. REVLIMID [Suspect]
     Dosage: 5 Milligram
     Route: 048
     Dates: start: 20111027
  3. REVLIMID [Suspect]
     Dosage: 10 Milligram
     Route: 048
     Dates: start: 20110928
  4. REVLIMID [Suspect]
     Route: 048
     Dates: start: 20110202, end: 20120424
  5. ALTEPLASE [Concomitant]
     Indication: DRUG USE FOR UNKNOWN INDICATION
     Route: 065
     Dates: start: 20120214
  6. ALUCAPS [Concomitant]
     Indication: DRUG USE FOR UNKNOWN INDICATION
     Dosage: 2 Capsule
     Route: 048
     Dates: start: 201205
  7. ALUCAPS [Concomitant]
     Dosage: 4 Capsule
     Route: 048
     Dates: start: 201205
  8. AMLODIPINE [Concomitant]
     Indication: DRUG USE FOR UNKNOWN INDICATION
     Dosage: 10 Milligram
     Route: 048
     Dates: start: 20091125
  9. ASCORBIC ACID [Concomitant]
     Indication: DRUG USE FOR UNKNOWN INDICATION
     Dosage: 50 Milligram
     Route: 048
     Dates: start: 201103
  10. ASPIRINE [Concomitant]
     Indication: DRUG USE FOR UNKNOWN INDICATION
     Dosage: 75 Milligram
     Route: 048
     Dates: start: 201205
  11. ATORVASTATIN [Concomitant]
     Indication: DRUG USE FOR UNKNOWN INDICATION
     Dosage: 40 Milligram
     Route: 048
     Dates: start: 201205
  12. BISOPROLOL [Concomitant]
     Indication: DRUG USE FOR UNKNOWN INDICATION
     Dosage: 5 Milligram
     Route: 048
     Dates: start: 201101
  13. CINACALCET [Concomitant]
     Indication: DRUG USE FOR UNKNOWN INDICATION
     Dosage: 30 Milligram
     Route: 048
     Dates: start: 201205
  14. CITRALOCK [Concomitant]
     Indication: DRUG USE FOR UNKNOWN INDICATION
     Dosage: 2 milliliter
     Route: 041
     Dates: start: 201101
  15. CITRALOCK [Concomitant]
     Dosage: 2 milliliter
     Route: 041
     Dates: start: 201101
  16. CLEXANE [Concomitant]
     Indication: DRUG USE FOR UNKNOWN INDICATION
     Dosage: 60 Milligram
     Route: 048
     Dates: start: 201202
  17. CLOPIDOGREL [Concomitant]
     Indication: DRUG USE FOR UNKNOWN INDICATION
     Dosage: 75 Milligram
     Route: 048
     Dates: start: 201205
  18. DEXAMETHASONE [Concomitant]
     Indication: DRUG USE FOR UNKNOWN INDICATION
     Dosage: 2 Milligram
     Route: 048
     Dates: start: 201205
  19. ENGERIX [Concomitant]
     Indication: DRUG USE FOR UNKNOWN INDICATION
     Dosage: 40 Microgram
     Route: 058
     Dates: start: 201106
  20. EPREX [Concomitant]
     Indication: DRUG USE FOR UNKNOWN INDICATION
     Dosage: 1000 IU (International Unit)
     Route: 041
     Dates: start: 201205
  21. FENTANYL [Concomitant]
     Indication: DRUG USE FOR UNKNOWN INDICATION
     Dosage: 25 Microgram
     Route: 061
     Dates: start: 201111
  22. GTN [Concomitant]
     Indication: DRUG USE FOR UNKNOWN INDICATION
     Dosage: Puff
     Route: 055
     Dates: start: 201111
  23. HEPARIN [Concomitant]
     Indication: DRUG USE FOR UNKNOWN INDICATION
     Dosage: 2000 IU (International Unit)
     Route: 041
     Dates: start: 201203
  24. HEPARIN [Concomitant]
     Route: 065
  25. LANTHANUM CARBONATE [Concomitant]
     Indication: DRUG USE FOR UNKNOWN INDICATION
     Dosage: 2000 Milligram
     Route: 048
     Dates: start: 201111
  26. LANTHANUM CARBONATE [Concomitant]
     Dosage: 2000 Milligram
     Route: 048
     Dates: start: 201202
  27. OXYNORM [Concomitant]
     Indication: DRUG USE FOR UNKNOWN INDICATION
     Route: 048
     Dates: start: 201111
  28. PARACETAMOL [Concomitant]
     Indication: DRUG USE FOR UNKNOWN INDICATION
     Dosage: 4 Gram
     Route: 048
     Dates: start: 201111
  29. RAMIPRIL [Concomitant]
     Indication: DRUG USE FOR UNKNOWN INDICATION
     Dosage: 5 Milligram
     Route: 048
     Dates: start: 201101
  30. RANITIDINE [Concomitant]
     Indication: DRUG USE FOR UNKNOWN INDICATION
     Dosage: 300 Milligram
     Route: 048
     Dates: start: 201205
  31. SALAZOPYRIN [Concomitant]
     Indication: DRUG USE FOR UNKNOWN INDICATION
     Dosage: 1500 Milligram
     Route: 048
     Dates: start: 200911
  32. SODIUM BICARBONATE [Concomitant]
     Indication: DRUG USE FOR UNKNOWN INDICATION
     Dosage: 1500 Milligram
     Route: 048
     Dates: start: 201101
  33. TRAMADOL [Concomitant]
     Indication: DRUG USE FOR UNKNOWN INDICATION
     Dosage: 200 Milligram
     Route: 048
     Dates: start: 201205

REACTIONS (5)
  - Acute abdomen [Fatal]
  - Thrombotic microangiopathy [Recovering/Resolving]
  - Leukocytoclastic vasculitis [Recovering/Resolving]
  - Peripheral ischaemia [Recovering/Resolving]
  - Acute myocardial infarction [Unknown]
